FAERS Safety Report 8848257 (Version 1)
Quarter: 2012Q4

REPORT INFORMATION
  Report Type: 
  Country: FR (occurrence: FR)
  Receive Date: 20121018
  Receipt Date: 20121018
  Transmission Date: 20130627
  Serious: Yes (Other)
  Sender: FDA-Public Use
  Company Number: FR-UCBSA-027397

PATIENT
  Age: 29 Year
  Sex: Female
  Weight: 57 kg

DRUGS (4)
  1. KEPPRA [Suspect]
     Indication: EPILEPSY
     Dosage: TOTAL DAILY DOSE: 3 G
     Route: 048
     Dates: start: 20061115
  2. KEPPRA [Suspect]
     Indication: EPILEPSY
     Route: 048
  3. LAMICTAL [Concomitant]
     Indication: EPILEPSY
     Dosage: TOTAL DAILY DOSE: 100 MG
     Route: 048
     Dates: start: 20060418
  4. SPECIAFOLDINE [Concomitant]
     Dosage: TOTAL DAILY DOSE: 5 MG
     Route: 048
     Dates: start: 201106

REACTIONS (2)
  - Premature delivery [Unknown]
  - Pregnancy [Recovered/Resolved]
